FAERS Safety Report 9941036 (Version 1)
Quarter: 2014Q1

REPORT INFORMATION
  Report Type: Spontaneous
  Country: DE (occurrence: DE)
  Receive Date: 20140303
  Receipt Date: 20140303
  Transmission Date: 20141002
  Serious: Yes (Other)
  Sender: FDA-Public Use
  Company Number: DE-PFIZER INC-2014056357

PATIENT
  Age: 72 Year
  Sex: Female

DRUGS (1)
  1. SORTIS [Suspect]
     Dosage: 40 MG, DAILY

REACTIONS (3)
  - Blood creatine phosphokinase increased [Unknown]
  - Myopathy [Unknown]
  - Movement disorder [Unknown]
